FAERS Safety Report 18491734 (Version 1)
Quarter: 2020Q4

REPORT INFORMATION
  Report Type: Report from Study
  Country: CL (occurrence: CL)
  Receive Date: 20201111
  Receipt Date: 20201111
  Transmission Date: 20210114
  Serious: Yes (Other)
  Sender: FDA-Public Use
  Company Number: NVSC2020CL299282

PATIENT
  Age: 12 Year
  Sex: Male
  Weight: 22 kg

DRUGS (1)
  1. OMNITROPE [Suspect]
     Active Substance: SOMATROPIN
     Indication: SKELETAL DYSPLASIA
     Dosage: 10 MG/1.5 MG, QD (IN THE SKIN) AMPOULE
     Route: 003
     Dates: start: 20160811

REACTIONS (2)
  - Product dose omission issue [Unknown]
  - Varicocele [Unknown]

NARRATIVE: CASE EVENT DATE: 20201103
